FAERS Safety Report 4669545-3 (Version None)
Quarter: 2005Q2

REPORT INFORMATION
  Report Type: 
  Country: None (occurrence: None)
  Receive Date: 20050523
  Receipt Date: 20050519
  Transmission Date: 20051028
  Serious: Yes (Other)
  Sender: FDA-Public Use
  Company Number: PHBS2005NO07060

PATIENT
  Age: 8 Year

DRUGS (1)
  1. RITALIN [Suspect]
     Indication: ATTENTION DEFICIT/HYPERACTIVITY DISORDER
     Dosage: 10/10/15 MG/DAY
     Route: 048
     Dates: start: 20040930

REACTIONS (1)
  - SPEECH DISORDER [None]
